FAERS Safety Report 7216119-6 (Version None)
Quarter: 2011Q1

REPORT INFORMATION
  Report Type: 
  Country: None (occurrence: None)
  Receive Date: 20110107
  Receipt Date: 20110106
  Transmission Date: 20110831
  Serious: Yes (Life-Threatening, Hospitalization, Other)
  Sender: FDA-Public Use
  Company Number: FR-BRISTOL-MYERS SQUIBB COMPANY-15457807

PATIENT
  Age: 40 Year
  Sex: Male

DRUGS (6)
  1. RIFINAH [Concomitant]
     Dates: end: 20091113
  2. LEVOTHYROX [Concomitant]
  3. HYDROCORTISONE [Concomitant]
  4. OXAZEPAM [Concomitant]
  5. IMOVANE [Concomitant]
  6. COUMADIN [Suspect]
     Dates: end: 20091113

REACTIONS (6)
  - HAEMOTHORAX [None]
  - COMA [None]
  - OVERDOSE [None]
  - GASTROINTESTINAL HAEMORRHAGE [None]
  - SHOCK HAEMORRHAGIC [None]
  - GASTRITIS EROSIVE [None]
